FAERS Safety Report 9319654 (Version 1)
Quarter: 2013Q2

REPORT INFORMATION
  Report Type: Report from Study
  Country: US (occurrence: US)
  Receive Date: 20130530
  Receipt Date: 20130530
  Transmission Date: 20140414
  Serious: Yes (Other)
  Sender: FDA-Public Use
  Company Number: US-ABBOTT-13P-163-1095956-00

PATIENT
  Sex: Female
  Weight: 87.17 kg

DRUGS (5)
  1. HUMIRA [Suspect]
     Indication: SPONDYLOARTHROPATHY
     Route: 058
     Dates: start: 200603, end: 200807
  2. HUMIRA [Suspect]
     Route: 058
     Dates: start: 200809
  3. NEXIUM [Concomitant]
     Indication: GASTROOESOPHAGEAL REFLUX DISEASE
  4. AZULFIDINE [Concomitant]
     Indication: SPONDYLOARTHROPATHY
  5. SINGULAIR [Concomitant]
     Indication: SEASONAL ALLERGY

REACTIONS (7)
  - Adenoma benign [Recovered/Resolved]
  - Weight decreased [Unknown]
  - Therapeutic response unexpected [Unknown]
  - Retroperitoneal lymphadenopathy [Unknown]
  - Splenomegaly [Unknown]
  - Skin lesion [Recovered/Resolved]
  - Off label use [Not Recovered/Not Resolved]
